FAERS Safety Report 7744832-0 (Version None)
Quarter: 2011Q3

REPORT INFORMATION
  Report Type: 
  Country: None (occurrence: None)
  Receive Date: 20110912
  Receipt Date: 20110825
  Transmission Date: 20111222
  Serious: Yes (Death)
  Sender: FDA-Public Use
  Company Number: JP-CELGENEUS-087-50794-11072366

PATIENT
  Age: 76 Year
  Sex: Male
  Weight: 52 kg

DRUGS (38)
  1. VIDAZA [Suspect]
     Dosage: 75 MILLIGRAM/SQ. METER
     Route: 058
     Dates: start: 20110516, end: 20110518
  2. DESFERAL [Concomitant]
     Dosage: 1000 MILLIGRAM
     Route: 041
     Dates: start: 20110622, end: 20110703
  3. ADONA [Concomitant]
     Dosage: 90 MILLIGRAM
     Route: 048
     Dates: start: 20110609, end: 20110713
  4. LENDORMIN [Concomitant]
     Dosage: .25 MILLIGRAM
     Route: 048
     Dates: start: 20110323
  5. TAMSULOSIN HCL [Concomitant]
     Dosage: .2 MILLIGRAM
     Route: 048
     Dates: start: 20110323
  6. TAMSULOSIN HCL [Concomitant]
     Dosage: .2 MILLIGRAM
     Route: 048
     Dates: start: 20110609, end: 20110713
  7. SPIRIVA [Concomitant]
     Dosage: 18 MICROGRAM
     Route: 048
     Dates: start: 20110323
  8. PURSENNID [Concomitant]
     Dosage: 12 MILLIGRAM
     Route: 048
     Dates: start: 20110323
  9. AUZEI [Concomitant]
     Dosage: 100 MILLIGRAM
     Route: 041
     Dates: start: 20110712, end: 20110712
  10. HYALEIN [Concomitant]
     Route: 061
     Dates: start: 20110620, end: 20110713
  11. VIDAZA [Suspect]
     Dosage: 75 MILLIGRAM/SQ. METER
     Route: 058
     Dates: start: 20110323, end: 20110325
  12. VIDAZA [Suspect]
     Dosage: 75 MILLIGRAM/SQ. METER
     Route: 058
     Dates: start: 20110609, end: 20110610
  13. DESFERAL [Concomitant]
     Dosage: 500 MILLIGRAM
     Route: 041
     Dates: start: 20110427, end: 20110531
  14. AMLODIPINE [Concomitant]
     Dosage: 5 MILLIGRAM
     Route: 048
     Dates: start: 20110609, end: 20110713
  15. EXJADE [Concomitant]
     Dosage: 1000 MILLIGRAM
     Route: 048
     Dates: start: 20110603, end: 20110621
  16. MAGNESIUM SULFATE [Concomitant]
     Dosage: 660 MILLIGRAM
     Route: 048
     Dates: start: 20110323
  17. POSTERISAN [Concomitant]
     Route: 061
     Dates: start: 20110323
  18. VIDAZA [Suspect]
     Dosage: 75 MILLIGRAM/SQ. METER
     Route: 058
     Dates: start: 20110510, end: 20110513
  19. PREDNISOLONE [Concomitant]
     Dosage: 10 MILLIGRAM
     Route: 048
     Dates: start: 20110609, end: 20110713
  20. ZOLPIDEM [Concomitant]
     Dosage: 5 MILLIGRAM
     Route: 048
     Dates: start: 20110609, end: 20110713
  21. CATALIN [Concomitant]
     Route: 061
     Dates: start: 20110407
  22. VIDAZA [Suspect]
     Dosage: 75 MILLIGRAM/SQ. METER
     Route: 058
     Dates: start: 20110613, end: 20110617
  23. ALLOPURINOL [Concomitant]
     Dosage: 100 MILLIGRAM
     Route: 048
     Dates: start: 20110323
  24. PREDNISOLONE [Concomitant]
     Dosage: 10 MILLIGRAM
     Route: 048
     Dates: start: 20110323
  25. PURSENNID [Concomitant]
     Dosage: 12 MILLIGRAM
     Route: 048
     Dates: start: 20110609, end: 20110713
  26. VIDAZA [Suspect]
     Dosage: 75 MILLIGRAM/SQ. METER
     Route: 058
     Dates: start: 20110711, end: 20110713
  27. DESFERAL [Concomitant]
     Dosage: 500 MILLIGRAM
     Route: 041
     Dates: start: 20110709, end: 20110713
  28. ADONA [Concomitant]
     Dosage: 90 MILLIGRAM
     Route: 048
     Dates: start: 20110323
  29. SULFAMETHOXAZOLE [Concomitant]
     Dosage: 1 DF
     Route: 048
     Dates: start: 20110609, end: 20110713
  30. AMLODIPINE [Concomitant]
     Dosage: .2 MILLIGRAM
     Route: 048
     Dates: start: 20110323
  31. SULFAMETHOXAZOLE [Concomitant]
     Dosage: 1 DF
     Route: 048
     Dates: start: 20110323
  32. ALLOPURINOL [Concomitant]
     Dosage: 100 MILLIGRAM
     Route: 048
     Dates: start: 20110609, end: 20110713
  33. ZOLPIDEM [Concomitant]
     Dosage: 5 MILLIGRAM
     Route: 048
     Dates: start: 20110407
  34. CATALIN [Concomitant]
     Route: 061
     Dates: start: 20110609, end: 20110713
  35. VIDAZA [Suspect]
     Dosage: 75 MILLIGRAM/SQ. METER
     Route: 058
     Dates: start: 20110328, end: 20110331
  36. SPIRIVA [Concomitant]
     Dosage: 18 MICROGRAM
     Route: 048
     Dates: start: 20110609, end: 20110713
  37. SEREVENT [Concomitant]
     Route: 048
     Dates: start: 20110407
  38. SEREVENT [Concomitant]
     Route: 048
     Dates: start: 20110609, end: 20110713

REACTIONS (1)
  - GASTROINTESTINAL HAEMORRHAGE [None]
